FAERS Safety Report 10102307 (Version 2)
Quarter: 2014Q2

REPORT INFORMATION
  Report Type: Spontaneous
  Country: CA (occurrence: CA)
  Receive Date: 20140424
  Receipt Date: 20140424
  Transmission Date: 20141212
  Serious: Yes (Life-Threatening)
  Sender: FDA-Public Use
  Company Number: CA-SA-2014SA013255

PATIENT
  Age: 6 Year
  Sex: Male

DRUGS (1)
  1. ALLERJECT [Suspect]
     Indication: ADVERSE EVENT
     Route: 065

REACTIONS (2)
  - Apparent death [Unknown]
  - Drug administration error [Unknown]
